FAERS Safety Report 17904810 (Version 1)
Quarter: 2020Q2

REPORT INFORMATION
  Report Type: Spontaneous
  Country: US (occurrence: US)
  Receive Date: 20200617
  Receipt Date: 20200617
  Transmission Date: 20200714
  Serious: No
  Sender: FDA-Public Use
  Company Number: US-ALLERGAN-1929850US

PATIENT
  Age: 70 Year
  Sex: Female

DRUGS (13)
  1. NEXIUM [Concomitant]
     Active Substance: ESOMEPRAZOLE MAGNESIUM
  2. NEURONTIN [Concomitant]
     Active Substance: GABAPENTIN
  3. AMBIEN [Concomitant]
     Active Substance: ZOLPIDEM TARTRATE
     Dosage: UNK, QHS
  4. THYROID MEDICATION [Concomitant]
     Active Substance: UNSPECIFIED INGREDIENT
  5. VIBERZI [Suspect]
     Active Substance: ELUXADOLINE
     Indication: IRRITABLE BOWEL SYNDROME
     Dosage: 100 MG, QD
     Dates: start: 201906, end: 201907
  6. NORCO [Concomitant]
     Active Substance: ACETAMINOPHEN\HYDROCODONE BITARTRATE
     Dosage: 5 MG, BID
  7. CELEBREX [Concomitant]
     Active Substance: CELECOXIB
  8. VIBERZI [Suspect]
     Active Substance: ELUXADOLINE
     Dosage: 50 MG, QD
  9. MULTIVITAMIN [Concomitant]
     Active Substance: VITAMINS
  10. CLARITIND 24 [Concomitant]
  11. VITAMIN B12 [Concomitant]
     Active Substance: CYANOCOBALAMIN
  12. UNNKNOWN MEDICATION FOR SACROILIAC JOINT DYSFUNCTION [Concomitant]
     Indication: ARTHROPATHY
  13. VIBERZI [Suspect]
     Active Substance: ELUXADOLINE
     Dosage: 50 MG, QOD

REACTIONS (6)
  - Intentional product misuse [Unknown]
  - Diarrhoea [Recovered/Resolved]
  - Change of bowel habit [Not Recovered/Not Resolved]
  - Gastrointestinal pain [Unknown]
  - Constipation [Unknown]
  - Flatulence [Not Recovered/Not Resolved]

NARRATIVE: CASE EVENT DATE: 20190716
